FAERS Safety Report 5042547-3 (Version None)
Quarter: 2006Q3

REPORT INFORMATION
  Report Type: 
  Country: None (occurrence: None)
  Receive Date: 20060705
  Receipt Date: 20060623
  Transmission Date: 20061208
  Serious: Yes (Life-Threatening)
  Sender: FDA-Public Use
  Company Number: ES-BRISTOL-MYERS SQUIBB COMPANY-13421508

PATIENT
  Age: 74 Year
  Sex: Male

DRUGS (1)
  1. SINEMET CR [Suspect]

REACTIONS (1)
  - HAEMOLYTIC ANAEMIA [None]
